FAERS Safety Report 10973636 (Version 2)
Quarter: 2015Q2

REPORT INFORMATION
  Report Type: Spontaneous
  Country: DE (occurrence: DE)
  Receive Date: 20150401
  Receipt Date: 20150511
  Transmission Date: 20150821
  Serious: Yes (Death, Other)
  Sender: FDA-Public Use
  Company Number: DE-SHIRE-DE201502527

PATIENT
  Age: 84 Year
  Sex: Male

DRUGS (1)
  1. FIRAZYR [Suspect]
     Active Substance: ICATIBANT ACETATE
     Indication: PRODUCT USED FOR UNKNOWN INDICATION
     Dosage: 30 MG, UNKNOWN
     Route: 058
     Dates: start: 20110404

REACTIONS (1)
  - Death [Fatal]

NARRATIVE: CASE EVENT DATE: 201408
